FAERS Safety Report 4961399-0 (Version None)
Quarter: 2006Q2

REPORT INFORMATION
  Report Type: 
  Country: None (occurrence: None)
  Receive Date: 20060403
  Receipt Date: 20050708
  Transmission Date: 20061013
  Serious: Yes (Other)
  Sender: FDA-Public Use
  Company Number: US-MERCK-0507USA01234

PATIENT
  Age: 77 Year
  Sex: Female
  Weight: 70 kg

DRUGS (13)
  1. VIOXX [Suspect]
     Indication: ARTHRITIS
     Route: 048
     Dates: start: 19991001, end: 20020401
  2. ZOLOFT [Concomitant]
     Route: 065
  3. FOSAMAX [Concomitant]
     Route: 065
  4. TOPROL-XL [Concomitant]
     Route: 065
  5. HYDROCHLOROTHIAZIDE AND TRIAMTERENE [Concomitant]
     Route: 065
  6. MONOPRIL [Concomitant]
     Route: 065
  7. PREDNISONE [Concomitant]
     Route: 065
  8. ARTHROTEC [Concomitant]
     Route: 065
  9. PREMPRO [Concomitant]
     Route: 065
  10. METHOTREXATE [Concomitant]
     Route: 065
  11. ALPRAZOLAM [Concomitant]
     Route: 065
  12. NALOXONE HYDROCHLORIDE AND PENTAZOCINE HYDROCHLORIDE [Concomitant]
     Route: 065
  13. FOLIC ACID [Concomitant]
     Route: 065

REACTIONS (1)
  - MYOCARDIAL INFARCTION [None]
